FAERS Safety Report 17225165 (Version 2)
Quarter: 2020Q1

REPORT INFORMATION
  Report Type: Report from Study
  Country: US (occurrence: US)
  Receive Date: 20200102
  Receipt Date: 20200320
  Transmission Date: 20200409
  Serious: Yes (Other)
  Sender: FDA-Public Use
  Company Number: US-GLAXOSMITHKLINE-US2019TSO237747

PATIENT
  Sex: Female

DRUGS (2)
  1. NIRAPARIB [Suspect]
     Active Substance: NIRAPARIB
     Dosage: 100 MG, QD
     Dates: start: 20190921
  2. NIRAPARIB [Suspect]
     Active Substance: NIRAPARIB
     Indication: OVARIAN CANCER
     Route: 065
     Dates: end: 20191127

REACTIONS (6)
  - Pulmonary hypertension [Unknown]
  - Cardiac disorder [Unknown]
  - Cardiac stress test abnormal [Unknown]
  - Echocardiogram abnormal [Unknown]
  - Electrocardiogram abnormal [Unknown]
  - Dyspnoea [Unknown]
